FAERS Safety Report 16094808 (Version 1)
Quarter: 2019Q1

REPORT INFORMATION
  Report Type: Spontaneous
  Country: US (occurrence: US)
  Receive Date: 20190218
  Receipt Date: 20190218
  Transmission Date: 20190418
  Serious: No
  Sender: FDA-Public Use
  Company Number: None

PATIENT
  Age: 24 Year
  Sex: Female

DRUGS (1)
  1. MYCOPHENOLATE MOF TAB 500MG [Suspect]
     Active Substance: MYCOPHENOLATE MOFETIL
     Indication: RENAL TRANSPLANT
     Dates: start: 20031215

REACTIONS (2)
  - Hypertension [None]
  - Tremor [None]

NARRATIVE: CASE EVENT DATE: 20190218
